FAERS Safety Report 9398758 (Version 4)
Quarter: 2013Q4

REPORT INFORMATION
  Report Type: Report from Study
  Country: FR (occurrence: FR)
  Receive Date: 20130712
  Receipt Date: 20131015
  Transmission Date: 20140711
  Serious: Yes (Hospitalization)
  Sender: FDA-Public Use
  Company Number: FR-ELI_LILLY_AND_COMPANY-FR201307000666

PATIENT
  Age: 59 Year
  Sex: Male
  Weight: 66 kg

DRUGS (10)
  1. PEMETREXED [Suspect]
     Indication: NON-SMALL CELL LUNG CANCER
     Dosage: 500 MG/M2, DAY 1 DAY 21
     Route: 042
     Dates: start: 20121126
  2. PEMETREXED [Suspect]
     Dosage: UNK
     Dates: start: 20130220
  3. FOLIC ACID [Concomitant]
     Indication: PREMEDICATION
  4. VITAMIN B12 [Concomitant]
     Indication: PREMEDICATION
  5. DEXAMETHASONE [Concomitant]
     Indication: PREMEDICATION
  6. IMOVANE [Concomitant]
  7. IXPRIM [Concomitant]
  8. KARDEGIC [Concomitant]
  9. PARIET [Concomitant]
  10. TAHOR [Concomitant]

REACTIONS (1)
  - Pancytopenia [Recovered/Resolved]
